FAERS Safety Report 5788724-5 (Version None)
Quarter: 2008Q2

REPORT INFORMATION
  Report Type: 
  Country: None (occurrence: None)
  Receive Date: 20080626
  Receipt Date: 20080620
  Transmission Date: 20081010
  Serious: Yes (Life-Threatening)
  Sender: FDA-Public Use
  Company Number: HK-NOVOPROD-273868

PATIENT
  Age: 39 Year
  Sex: Female
  Weight: 48.5 kg

DRUGS (6)
  1. NOVOSEVEN [Suspect]
     Indication: POSTPARTUM HAEMORRHAGE
     Dosage: 1.2 MG, UNK
     Route: 042
     Dates: start: 20070202, end: 20070220
  2. RED BLOOD CELLS [Concomitant]
     Dosage: 26 U, UNK
     Route: 042
     Dates: start: 20070130, end: 20070130
  3. PLATELETS [Concomitant]
     Dosage: 13 U, UNK
     Route: 042
     Dates: start: 20070130, end: 20070130
  4. FRESH FROZEN PLASMA [Concomitant]
     Dosage: 21 U, UNK
     Route: 042
     Dates: start: 20070130, end: 20070130
  5. SYNTOCINON [Concomitant]
     Indication: UTERINE HYPOTONUS
     Route: 042
     Dates: start: 20070130, end: 20070130
  6. SYNTOCINON [Concomitant]
     Dosage: INFUSION 40 U IN 500 ML SALINE
     Route: 042
     Dates: start: 20070130

REACTIONS (2)
  - CAVERNOUS SINUS THROMBOSIS [None]
  - SINUSITIS [None]
